FAERS Safety Report 11101393 (Version 1)
Quarter: 2015Q2

REPORT INFORMATION
  Report Type: Spontaneous
  Country: US (occurrence: US)
  Receive Date: 20150508
  Receipt Date: 20150508
  Transmission Date: 20150821
  Serious: No
  Sender: FDA-Public Use
  Company Number: US-PFIZER INC-2015151240

PATIENT
  Age: 57 Year
  Sex: Female

DRUGS (13)
  1. FLUTICASONE PROPIONATE. [Suspect]
     Active Substance: FLUTICASONE PROPIONATE
     Dosage: 50 MCG/ACT, 1X/DAY AT 2 SPRAYS EACH NOSTRIL EVERY DAY
     Route: 045
     Dates: start: 20150102
  2. HYDROCODONE BITARTRATE AND ACETAMINOPHEN [Suspect]
     Active Substance: ACETAMINOPHEN\HYDROCODONE BITARTRATE
     Indication: PAIN
     Dosage: 7.5-325 MG, TAKE 1 TABLET EVERY12 HOURS AS NEEDED
     Route: 048
     Dates: start: 20040316
  3. LYRICA [Suspect]
     Active Substance: PREGABALIN
     Indication: DIABETIC NEUROPATHY
     Dosage: 50 MG, 2X/DAY
     Route: 048
     Dates: start: 20110602
  4. PRAVASTATIN SODIUM. [Suspect]
     Active Substance: PRAVASTATIN SODIUM
     Dosage: 40 MG, 1X/DAY
     Route: 048
     Dates: start: 20130515
  5. ATIVAN [Suspect]
     Active Substance: LORAZEPAM
     Dosage: 1 MG AT ? TO 1 TAB AS NEEDED
     Route: 048
     Dates: start: 20110602
  6. LYRICA [Suspect]
     Active Substance: PREGABALIN
     Dosage: 50 MG, 2X/DAY
     Route: 048
     Dates: start: 20140623
  7. NITROSTAT [Suspect]
     Active Substance: NITROGLYCERIN
     Indication: CHEST PAIN
     Dosage: 0.4 MG, AS NEEDED (1 PO UNDER TONGUE Q 5 MIN X3)
     Route: 060
  8. ASPIR-81 [Suspect]
     Active Substance: ASPIRIN
     Dosage: 81 MG, UNK
  9. LASIX [Suspect]
     Active Substance: FUROSEMIDE
     Dosage: 20 MG TABLET 1X/DAY
     Route: 048
     Dates: start: 20060502
  10. LEVEMIR [Suspect]
     Active Substance: INSULIN DETEMIR
     Dosage: 55 IU, 2X/DAY
     Route: 058
     Dates: start: 20100212
  11. METFORMIN HCL [Suspect]
     Active Substance: METFORMIN HYDROCHLORIDE
     Dosage: 1000 MG, 2X/DAY
     Dates: start: 20070123
  12. PANTOPRAZOLE [Suspect]
     Active Substance: PANTOPRAZOLE SODIUM
     Dosage: 40 MG, 2X/DAY
     Route: 048
     Dates: start: 20140210
  13. VALSARTAN-HYDROCHLOROTHIAZIDE (UNKNOWN) [Suspect]
     Active Substance: HYDROCHLOROTHIAZIDE\VALSARTAN
     Dosage: HYDROCHLOROTHIAZIDE, VALSARTAN (12.5-160 MG ), 1X/DAY
     Route: 048
     Dates: start: 20130926

REACTIONS (6)
  - Impaired work ability [Unknown]
  - Back injury [Unknown]
  - Fall [Unknown]
  - Joint injury [Unknown]
  - Road traffic accident [Unknown]
  - Nerve injury [Unknown]
